FAERS Safety Report 21346334 (Version 3)
Quarter: 2022Q4

REPORT INFORMATION
  Report Type: Spontaneous
  Country: US (occurrence: US)
  Receive Date: 20220917
  Receipt Date: 20221114
  Transmission Date: 20230113
  Serious: Yes (Death, Life-Threatening, Hospitalization, Other)
  Sender: FDA-Public Use
  Company Number: US-UNITED THERAPEUTICS-UNT-2022-020484

PATIENT
  Age: 80 Year
  Sex: Female

DRUGS (3)
  1. REMODULIN [Suspect]
     Active Substance: TREPROSTINIL
     Indication: Pulmonary arterial hypertension
     Dosage: UNK, CONTINUING
     Route: 041
     Dates: start: 20210127
  2. REMODULIN [Suspect]
     Active Substance: TREPROSTINIL
     Dosage: 0.220 ?G/KG (AT AN INFUSION PUMP RATE OF 35 ML/24HR), CONTINUING [USING 5 ML OF REMODULIN (10 MG/ML)
     Route: 041
  3. MACITENTAN [Concomitant]
     Active Substance: MACITENTAN
     Indication: Product used for unknown indication
     Dosage: UNK
     Route: 048

REACTIONS (4)
  - General physical health deterioration [Fatal]
  - Acute respiratory failure [Unknown]
  - Device issue [Unknown]
  - Device leakage [Unknown]

NARRATIVE: CASE EVENT DATE: 20220905
